FAERS Safety Report 6284989-4 (Version None)
Quarter: 2009Q3

REPORT INFORMATION
  Report Type: 
  Country: None (occurrence: None)
  Receive Date: 20090723
  Receipt Date: 20090709
  Transmission Date: 20100115
  Serious: Yes (Other)
  Sender: FDA-Public Use
  Company Number: GB-1170218

PATIENT
  Sex: Female

DRUGS (2)
  1. DEXAMETHASONE [Suspect]
  2. AMLODIPINE BESYLATE [Suspect]
     Dosage: ORAL
     Route: 048

REACTIONS (2)
  - DYSPHAGIA [None]
  - OESOPHAGEAL CANDIDIASIS [None]
